FAERS Safety Report 6032503-0 (Version None)
Quarter: 2009Q1

REPORT INFORMATION
  Report Type: 
  Country: None (occurrence: None)
  Receive Date: 20090109
  Receipt Date: 20081013
  Transmission Date: 20090719
  Serious: No
  Sender: FDA-Public Use
  Company Number: A0751575A

PATIENT
  Age: 49 Year
  Sex: Female

DRUGS (3)
  1. TYKERB [Suspect]
     Indication: BREAST CANCER
     Dosage: 1250MG PER DAY
     Route: 048
     Dates: start: 20081008
  2. XELODA [Suspect]
     Indication: BREAST CANCER
     Route: 048
     Dates: start: 20081008
  3. NEXIUM [Concomitant]

REACTIONS (1)
  - NAUSEA [None]
